FAERS Safety Report 8213045-0 (Version None)
Quarter: 2012Q1

REPORT INFORMATION
  Report Type: 
  Country: None (occurrence: None)
  Receive Date: 20120315
  Receipt Date: 20120312
  Transmission Date: 20120608
  Serious: Yes (Hospitalization)
  Sender: FDA-Public Use
  Company Number: US-PFIZER INC-2012043024

PATIENT
  Sex: Female

DRUGS (2)
  1. XANAX [Suspect]
     Dosage: UNK
  2. BUTRANS [Suspect]
     Dosage: 5 UG, PER HOUR
     Route: 062
     Dates: start: 20111031, end: 20120201

REACTIONS (2)
  - DRUG SCREEN POSITIVE [None]
  - HYPOTENSION [None]
